FAERS Safety Report 16826190 (Version 1)
Quarter: 2019Q3

REPORT INFORMATION
  Report Type: Spontaneous
  Country: US (occurrence: US)
  Receive Date: 20190919
  Receipt Date: 20190919
  Transmission Date: 20191005
  Serious: Yes (Hospitalization)
  Sender: FDA-Public Use
  Company Number: US-HIKMA PHARMACEUTICALS USA INC.-US-H14001-19-04900

PATIENT
  Sex: Female

DRUGS (1)
  1. LIDOCAINE. [Suspect]
     Active Substance: LIDOCAINE
     Indication: ARTHRITIS
     Dosage: FORM STRENGTH: 50 MG / 5 ML
     Route: 014
     Dates: start: 20190903

REACTIONS (5)
  - Paralysis [Recovering/Resolving]
  - Malaise [Recovering/Resolving]
  - Presyncope [Recovering/Resolving]
  - Nausea [Recovered/Resolved]
  - Syncope [Recovering/Resolving]

NARRATIVE: CASE EVENT DATE: 20190903
